FAERS Safety Report 6355134-1 (Version None)
Quarter: 2009Q3

REPORT INFORMATION
  Report Type: 
  Country: None (occurrence: None)
  Receive Date: 20090914
  Receipt Date: 20090902
  Transmission Date: 20100115
  Serious: Yes (Hospitalization)
  Sender: FDA-Public Use
  Company Number: US-ELI_LILLY_AND_COMPANY-US200909000839

PATIENT
  Sex: Female
  Weight: 145.13 kg

DRUGS (8)
  1. BYETTA [Suspect]
     Indication: TYPE 2 DIABETES MELLITUS
     Dosage: 5 UG, 2/D
     Route: 058
     Dates: start: 20070101, end: 20070201
  2. BYETTA [Suspect]
     Dosage: 10 UG, 2/D
     Route: 058
     Dates: start: 20070201
  3. METFORMIN HCL [Concomitant]
     Indication: TYPE 2 DIABETES MELLITUS
  4. DIOVAN HCT [Concomitant]
     Indication: BLOOD PRESSURE
  5. SIMVASTATIN [Concomitant]
     Indication: BLOOD CHOLESTEROL INCREASED
  6. PROTONIX /01263201/ [Concomitant]
     Indication: IRRITABLE BOWEL SYNDROME
     Dates: end: 20090801
  7. PAXIL [Concomitant]
     Indication: ANXIETY
     Dates: start: 20020101
  8. CLONAZEPAM [Concomitant]
     Indication: RESTLESS LEGS SYNDROME

REACTIONS (12)
  - ARTHRALGIA [None]
  - BLOOD GLUCOSE INCREASED [None]
  - CHEST PAIN [None]
  - DRUG INEFFECTIVE [None]
  - FALL [None]
  - IRRITABLE BOWEL SYNDROME [None]
  - PAIN [None]
  - PAIN IN EXTREMITY [None]
  - SKELETAL INJURY [None]
  - STRESS [None]
  - VISION BLURRED [None]
  - WEIGHT DECREASED [None]
